FAERS Safety Report 15467071 (Version 3)
Quarter: 2018Q4

REPORT INFORMATION
  Report Type: Report from Study
  Country: US (occurrence: US)
  Receive Date: 20181005
  Receipt Date: 20181019
  Transmission Date: 20190204
  Serious: Yes (Hospitalization, Other)
  Sender: FDA-Public Use
  Company Number: US-PHARMING-PHAUS2018000629

PATIENT

DRUGS (10)
  1. RUCONEST [Suspect]
     Active Substance: HUMAN C1-ESTERASE INHIBITOR
     Indication: HEREDITARY ANGIOEDEMA
     Dosage: 3400 IU, SINGLE
     Route: 042
     Dates: start: 20180918, end: 20180918
  2. MULTIVITAMIN WITH MINERALS [Concomitant]
     Active Substance: MINERALS\VITAMINS
     Dosage: 1 TABLET, QD
     Route: 048
  3. MIRENA [Concomitant]
     Active Substance: LEVONORGESTREL
     Dosage: 52 MG, SINGLE
     Route: 015
  4. FIRAZYR [Concomitant]
     Active Substance: ICATIBANT ACETATE
     Indication: ANAPHYLACTIC REACTION
     Dosage: 30 MG, EVERY 6 HOURS AS NEEDED
     Route: 058
  5. ALPRAZOLAM. [Concomitant]
     Active Substance: ALPRAZOLAM
     Indication: PANIC REACTION
  6. CITALOPRAM [Concomitant]
     Active Substance: CITALOPRAM HYDROBROMIDE
     Dosage: 40 MG, QD
     Route: 048
  7. ALBUTEROL. [Concomitant]
     Active Substance: ALBUTEROL
     Indication: WHEEZING
     Dosage: 2 PUFFS, EVERY 4 HOURS AS NEEDED
     Route: 055
  8. CETIRIZINE [Concomitant]
     Active Substance: CETIRIZINE HYDROCHLORIDE
     Dosage: 1 TABLET, QD
     Route: 048
  9. ALPRAZOLAM. [Concomitant]
     Active Substance: ALPRAZOLAM
     Indication: ANXIETY
     Dosage: 0.5-1 TABLET DAILY AS NEEDED
     Route: 048
  10. BIFIDOBACTERIUM-LACTOBACILLUS [Concomitant]
     Dosage: 1 TABLET, QD
     Route: 048

REACTIONS (5)
  - Blood pressure systolic increased [Not Recovered/Not Resolved]
  - Anaphylactic reaction [Recovered/Resolved]
  - Rash [Unknown]
  - Pyrexia [Unknown]
  - Chest pain [Unknown]

NARRATIVE: CASE EVENT DATE: 201809
